FAERS Safety Report 15802811 (Version 1)
Quarter: 2019Q1

REPORT INFORMATION
  Report Type: Report from Study
  Country: TH (occurrence: TH)
  Receive Date: 20190109
  Receipt Date: 20190109
  Transmission Date: 20190417
  Serious: Yes (Hospitalization, Other)
  Sender: FDA-Public Use
  Company Number: PHHY2018TH038351

PATIENT
  Age: 60 Year
  Sex: Female

DRUGS (2)
  1. AFINITOR [Suspect]
     Active Substance: EVEROLIMUS
     Indication: BREAST CANCER METASTATIC
     Dosage: 10 MG, UNK
     Route: 048
  2. AFINITOR [Suspect]
     Active Substance: EVEROLIMUS
     Dosage: 5 MG, UNK
     Route: 048

REACTIONS (8)
  - Fatigue [Not Recovered/Not Resolved]
  - Malignant neoplasm progression [Unknown]
  - Wound complication [Not Recovered/Not Resolved]
  - Breast cancer [Unknown]
  - Breast mass [Unknown]
  - Hypotension [Not Recovered/Not Resolved]
  - Wound secretion [Recovering/Resolving]
  - Wound [Recovering/Resolving]

NARRATIVE: CASE EVENT DATE: 20180321
